FAERS Safety Report 15922167 (Version 1)
Quarter: 2019Q1

REPORT INFORMATION
  Report Type: Spontaneous
  Country: US (occurrence: US)
  Receive Date: 20190205
  Receipt Date: 20190205
  Transmission Date: 20190417
  Serious: No
  Sender: FDA-Public Use
  Company Number: None

PATIENT
  Age: 81 Year
  Sex: Female
  Weight: 69.3 kg

DRUGS (7)
  1. MAGNESIUM POTASSIUM [Concomitant]
  2. ALOE VERA JUICE [Concomitant]
  3. GLUCOSAMINE CHONDROITIN [Concomitant]
     Active Substance: CHONDROITIN SULFATE (BOVINE)\GLUCOSAMINE HYDROCHLORIDE
  4. CIPRO [Suspect]
     Active Substance: CIPROFLOXACIN HYDROCHLORIDE
  5. CALCIUM [Concomitant]
     Active Substance: CALCIUM
  6. VITAMIN C [Concomitant]
     Active Substance: ASCORBIC ACID
  7. MULTI VIT [Concomitant]
     Active Substance: VITAMINS

REACTIONS (3)
  - Back pain [None]
  - Urticaria [None]
  - Vitreous floaters [None]

NARRATIVE: CASE EVENT DATE: 20190115
